FAERS Safety Report 4489513-4 (Version None)
Quarter: 2004Q4

REPORT INFORMATION
  Report Type: 
  Country: None (occurrence: None)
  Receive Date: 20041026
  Receipt Date: 20041011
  Transmission Date: 20050328
  Serious: Yes (Other)
  Sender: FDA-Public Use
  Company Number: JP_041004778

PATIENT
  Age: 43 Year
  Sex: Male

DRUGS (6)
  1. ONCOVIN [Suspect]
     Indication: AESTHESIONEUROBLASTOMA
     Dosage: 1.2 MG/M2/OTHER
     Route: 050
  2. CYCLOPHOSPHAMIDE [Concomitant]
  3. DOXORUBICIN HCL [Concomitant]
  4. ETOPOSIDE [Concomitant]
  5. CISPLATIN [Concomitant]
  6. RADIOTHERAPY [Concomitant]

REACTIONS (8)
  - BLOOD CHROMIUM DECREASED [None]
  - BLOOD ELECTROLYTES ABNORMAL [None]
  - HAEMATOTOXICITY [None]
  - HYPONATRAEMIA [None]
  - ILEUS PARALYTIC [None]
  - INAPPROPRIATE ANTIDIURETIC HORMONE SECRETION [None]
  - PYREXIA [None]
  - THERAPY NON-RESPONDER [None]
